FAERS Safety Report 4976439-2 (Version None)
Quarter: 2006Q2

REPORT INFORMATION
  Report Type: 
  Country: None (occurrence: None)
  Receive Date: 20060419
  Receipt Date: 20060410
  Transmission Date: 20061013
  Serious: Yes (Death)
  Sender: FDA-Public Use
  Company Number: FR-ROCHE-443993

PATIENT
  Age: 19 Year
  Sex: Female

DRUGS (5)
  1. RIVOTRIL [Suspect]
     Indication: DRUG USE FOR UNKNOWN INDICATION
     Route: 065
     Dates: end: 20051205
  2. LAROXYL [Suspect]
     Indication: DRUG USE FOR UNKNOWN INDICATION
     Route: 048
     Dates: end: 20051205
  3. MODOPAR [Concomitant]
  4. NITOMAN [Concomitant]
     Dates: end: 20051205
  5. DEPAKENE [Concomitant]

REACTIONS (2)
  - ANTIDEPRESSANT DRUG LEVEL [None]
  - OVERDOSE [None]
